FAERS Safety Report 4463513-2 (Version None)
Quarter: 2004Q3

REPORT INFORMATION
  Report Type: 
  Country: None (occurrence: None)
  Receive Date: 20040930
  Receipt Date: 20040927
  Transmission Date: 20050211
  Serious: Yes (Hospitalization)
  Sender: FDA-Public Use
  Company Number: CH-MERCK-0409CHE00044

PATIENT
  Age: 72 Year
  Sex: Female
  Weight: 55 kg

DRUGS (6)
  1. RISEDRONATE SODIUM [Concomitant]
     Indication: OSTEOPOROSIS
     Route: 048
     Dates: start: 20021201, end: 20040818
  2. VIOXX [Suspect]
     Indication: POLYARTHRITIS
     Route: 048
     Dates: start: 20040701, end: 20040818
  3. VIOXX [Suspect]
     Route: 048
     Dates: start: 20030101, end: 20030101
  4. VIOXX [Suspect]
     Route: 048
     Dates: start: 20030101, end: 20030101
  5. SPIRULINE [Suspect]
     Indication: POLYARTHRITIS
     Route: 048
     Dates: start: 20040808, end: 20040808
  6. SPIRULINE [Suspect]
     Route: 048
     Dates: start: 20040817, end: 20040817

REACTIONS (3)
  - MELAENA [None]
  - PETECHIAE [None]
  - THROMBOCYTOPENIA [None]
